FAERS Safety Report 7132975-4 (Version None)
Quarter: 2010Q4

REPORT INFORMATION
  Report Type: 
  Country: None (occurrence: None)
  Receive Date: 20101117
  Receipt Date: 20101108
  Transmission Date: 20110411
  Serious: Yes (Hospitalization)
  Sender: FDA-Public Use
  Company Number: AXC-2010-000292

PATIENT
  Age: 32 Year
  Sex: Male
  Weight: 157 kg

DRUGS (11)
  1. DICYCLOMINE [Suspect]
     Indication: PRODUCT USED FOR UNKNOWN INDICATION
     Dosage: 10 MG, QID
  2. PHENTERMINE HYDROCHLORIDE (PHENTERMINE HYDROCHLORIDE) UNKNOWN [Suspect]
     Indication: APPETITE DISORDER
     Dosage: 37.5 MG, BID
  3. ESOMEPRAZOLE (ESOMEPRAZOLE) [Concomitant]
  4. LEVOTHYROXINE SODIUM [Concomitant]
  5. HYDROCHLOROTHIAZIDE W/IRBESARTAN (HYDROCHLOROTHIAZIDE, IRBESARTAN) [Concomitant]
  6. METOPROLOL SUCCINATE [Concomitant]
  7. METOCLOPRAMIDE [Concomitant]
  8. ACETAMINOPHEN AND OXYCODONE HCL [Concomitant]
  9. OXYCODONE HCL [Concomitant]
  10. PROCHLORPERAZINE MALEATE [Concomitant]
  11. TESTOSTERONE [Concomitant]

REACTIONS (8)
  - CELLULITIS [None]
  - LETHARGY [None]
  - MUSCULAR WEAKNESS [None]
  - PAIN [None]
  - PAROTITIS [None]
  - RASH [None]
  - RENAL FAILURE ACUTE [None]
  - RHABDOMYOLYSIS [None]
